FAERS Safety Report 20815428 (Version 1)
Quarter: 2022Q2

REPORT INFORMATION
  Report Type: Spontaneous
  Country: FR (occurrence: FR)
  Receive Date: 20220511
  Receipt Date: 20220511
  Transmission Date: 20220721
  Serious: Yes (Other)
  Sender: FDA-Public Use
  Company Number: None

PATIENT
  Age: 80 Year
  Weight: 67 kg

DRUGS (6)
  1. DICLOFENAC [Suspect]
     Active Substance: DICLOFENAC
     Indication: Pain
     Dosage: AS NEEDED
     Route: 061
     Dates: start: 20220127, end: 20220209
  2. HYDROCHLOROTHIAZIDE [Suspect]
     Active Substance: HYDROCHLOROTHIAZIDE
     Indication: Hypertension
     Dosage: 12.5 MILLIGRAM, OD
     Route: 048
     Dates: start: 20220126, end: 20220211
  3. LOVENOX [Suspect]
     Active Substance: ENOXAPARIN SODIUM
     Indication: Vascular disorder prophylaxis
     Dosage: 1 INJECTION PER DAY
     Route: 058
     Dates: start: 20220121, end: 20220211
  4. BISOPROLOL FUMARATE [Suspect]
     Active Substance: BISOPROLOL FUMARATE
     Indication: Hypertension
     Dosage: 2.5 MILLIGRAM, OD
     Route: 048
     Dates: start: 20220121
  5. AMLODIPINE [Suspect]
     Active Substance: AMLODIPINE BESYLATE
     Indication: Hypertension
     Dosage: 5 MILLIGRAM, OD
     Route: 048
     Dates: start: 20220121
  6. ATORVASTATIN [Suspect]
     Active Substance: ATORVASTATIN
     Indication: Ischaemic stroke
     Dosage: 40 MILLIGRAM, OD
     Route: 048
     Dates: start: 20220122, end: 20220211

REACTIONS (5)
  - Cholestasis [Unknown]
  - Thrombocytopenia [Unknown]
  - Flank pain [Unknown]
  - Rash erythematous [Unknown]
  - Eosinophilia [Unknown]

NARRATIVE: CASE EVENT DATE: 20220207
